FAERS Safety Report 12528325 (Version 1)
Quarter: 2016Q3

REPORT INFORMATION
  Report Type: Spontaneous
  Country: US (occurrence: US)
  Receive Date: 20160703
  Receipt Date: 20160703
  Transmission Date: 20161109
  Serious: No
  Sender: FDA-Public Use
  Company Number: US-NEW HAVEN PHARMACEUTICALS, INC-NHP201604-000022

PATIENT
  Age: 76 Year
  Sex: Female

DRUGS (1)
  1. DURLAZA [Suspect]
     Active Substance: ASPIRIN

REACTIONS (1)
  - Feeling abnormal [Unknown]
